FAERS Safety Report 20668518 (Version 1)
Quarter: 2022Q2

REPORT INFORMATION
  Report Type: Spontaneous
  Country: US (occurrence: None)
  Receive Date: 20220401
  Receipt Date: 20220401
  Transmission Date: 20220721
  Serious: Yes (unspecified)
  Sender: FDA-Public Use
  Company Number: None

PATIENT
  Sex: Male

DRUGS (3)
  1. GONADORELIN ACETATE [Suspect]
     Active Substance: GONADORELIN ACETATE
     Indication: Testicular atrophy
     Dosage: 0.5 ML TWICE WEEKLY INTRAMUSCULAR?
     Route: 030
     Dates: start: 20210603
  2. Compounded testosterone cypionate/Anastrozole [Concomitant]
     Dates: start: 20210603
  3. CJC-1295/ipamorelin acetate [Concomitant]
     Dates: start: 20211203

REACTIONS (2)
  - Injection site abscess [None]
  - Recalled product administered [None]
